FAERS Safety Report 13153824 (Version 1)
Quarter: 2017Q1

REPORT INFORMATION
  Report Type: Spontaneous
  Country: DE (occurrence: DE)
  Receive Date: 20170126
  Receipt Date: 20170126
  Transmission Date: 20170428
  Serious: Yes (Hospitalization, Other)
  Sender: FDA-Public Use
  Company Number: DE-NOVOPROD-526778

PATIENT
  Age: 16 Year
  Sex: Male
  Weight: 96 kg

DRUGS (6)
  1. ORFIRIL [Concomitant]
     Active Substance: VALPROIC ACID
     Dosage: 1000 MG - 0 - 1500 MG/DAY ALTERNATING WITH 1000 MG - 0 - 1300 MG/DAY
     Route: 048
  2. TESTIM [Concomitant]
     Active Substance: TESTOSTERONE
     Dosage: 12.5 MG, QD
     Route: 065
  3. NORDITROPIN [Suspect]
     Active Substance: SOMATROPIN
     Indication: HYPOPITUITARISM
     Dosage: 2 MG, QD
     Route: 058
     Dates: start: 20161021, end: 20161214
  4. NORDITROPIN [Suspect]
     Active Substance: SOMATROPIN
     Indication: SEPTO-OPTIC DYSPLASIA
     Dosage: 1 MG, QD
     Route: 058
     Dates: start: 20161215
  5. L-THYROXIN HENNING [Concomitant]
     Active Substance: LEVOTHYROXINE SODIUM
     Dosage: 175 ?G, QD
  6. HYDROCORTISON GALEN [Concomitant]
     Dosage: 10 MG X AT 8:00 A.M., 5 MG X AT 2:00 P.M., 5 MG X AT 8.00 P.M.

REACTIONS (3)
  - Weight increased [Not Recovered/Not Resolved]
  - Oedema peripheral [Not Recovered/Not Resolved]
  - Partial seizures [Unknown]

NARRATIVE: CASE EVENT DATE: 201610
